FAERS Safety Report 7972347 (Version 6)
Quarter: 2012Q4

REPORT INFORMATION
  Report Type: Report from Study
  Country: US (occurrence: US)
  Receive Date: 20110603
  Receipt Date: 20120829
  Transmission Date: 20130627
  Serious: Yes (Hospitalization)
  Sender: FDA-Public Use
  Company Number: US-BIOGENIDEC-2011BI019334

PATIENT
  Age: 74 Year
  Sex: Female
  Weight: 56 kg

DRUGS (6)
  1. TYSABRI [Suspect]
     Indication: MULTIPLE SCLEROSIS
     Route: 042
     Dates: start: 20080109, end: 20110405
  2. CLOPIDOGREL [Concomitant]
     Route: 048
  3. LOVASTATIN [Concomitant]
     Route: 048
  4. DIPHENHYDRAMINE-APAP [Concomitant]
     Route: 048
  5. IBUPROFEN [Concomitant]
  6. TRAMADOL [Concomitant]
     Route: 048
     Dates: start: 20110204

REACTIONS (1)
  - Decubitus ulcer [Recovered/Resolved]
